FAERS Safety Report 8509504-3 (Version None)
Quarter: 2012Q3

REPORT INFORMATION
  Report Type: 
  Country: None (occurrence: None)
  Receive Date: 20120713
  Receipt Date: 20120704
  Transmission Date: 20120928
  Serious: Yes (Hospitalization, Other)
  Sender: FDA-Public Use
  Company Number: DK-PFIZER INC-2012160851

PATIENT
  Age: 57 Year
  Sex: Female

DRUGS (2)
  1. CARBOPLATIN [Suspect]
     Indication: UTERINE CANCER
     Dosage: UNK
     Dates: start: 20100503, end: 20100901
  2. TAXOL [Suspect]
     Indication: UTERINE CANCER
     Dosage: UNK
     Dates: start: 20100503, end: 20100901

REACTIONS (6)
  - MYOCLONUS [None]
  - DISCOMFORT [None]
  - PAIN IN EXTREMITY [None]
  - CONVULSION [None]
  - QUALITY OF LIFE DECREASED [None]
  - PAIN [None]
